FAERS Safety Report 4655399-8 (Version None)
Quarter: 2005Q2

REPORT INFORMATION
  Report Type: 
  Country: None (occurrence: None)
  Receive Date: 20050506
  Receipt Date: 20050502
  Transmission Date: 20051028
  Serious: Yes (Other)
  Sender: FDA-Public Use
  Company Number: US-ABBOTT-05P-163-0299090-00

PATIENT
  Sex: Female
  Weight: 59.02 kg

DRUGS (2)
  1. SYNTHROID [Suspect]
     Indication: HYPOTHYROIDISM
     Route: 048
     Dates: end: 20050424
  2. SYNTHROID [Suspect]
     Route: 048
     Dates: start: 20050425

REACTIONS (2)
  - HAIR COLOUR CHANGES [None]
  - OVARIAN CYST [None]
